FAERS Safety Report 7041552-5 (Version None)
Quarter: 2010Q4

REPORT INFORMATION
  Report Type: 
  Country: None (occurrence: None)
  Receive Date: 20101013
  Receipt Date: 20100726
  Transmission Date: 20110411
  Serious: No
  Sender: FDA-Public Use
  Company Number: US-ASTRAZENECA-2010SE34741

PATIENT
  Age: 59 Year
  Sex: Female
  Weight: 83.9 kg

DRUGS (7)
  1. SYMBICORT [Suspect]
     Indication: ASTHMA
     Dosage: 160 MCG
     Route: 055
  2. PRILOSEC [Concomitant]
  3. TRAZODONE HCL [Concomitant]
  4. CELEXA [Concomitant]
  5. MEVACOR [Concomitant]
  6. DITROPAN [Concomitant]
  7. CALCIUM [Concomitant]

REACTIONS (2)
  - DRUG DOSE OMISSION [None]
  - DYSPNOEA [None]
